FAERS Safety Report 6349572-0 (Version None)
Quarter: 2009Q3

REPORT INFORMATION
  Report Type: 
  Country: None (occurrence: None)
  Receive Date: 20090911
  Receipt Date: 20090831
  Transmission Date: 20100115
  Serious: Yes (Other)
  Sender: FDA-Public Use
  Company Number: US-ELI_LILLY_AND_COMPANY-US200909000098

PATIENT
  Sex: Female

DRUGS (2)
  1. SYMBYAX [Suspect]
  2. VALIUM [Concomitant]

REACTIONS (6)
  - BODY TEMPERATURE FLUCTUATION [None]
  - FATIGUE [None]
  - HYPERHIDROSIS [None]
  - HYPERTENSION [None]
  - MALAISE [None]
  - POTENTIATING DRUG INTERACTION [None]
